FAERS Safety Report 15269187 (Version 2)
Quarter: 2018Q3

REPORT INFORMATION
  Report Type: Report from Study
  Country: US (occurrence: US)
  Receive Date: 20180813
  Receipt Date: 20180817
  Transmission Date: 20181010
  Serious: Yes (Other)
  Sender: FDA-Public Use
  Company Number: US-BRISTOL-MYERS SQUIBB COMPANY-BMS-2018-074157

PATIENT
  Age: 70 Year
  Sex: Female

DRUGS (4)
  1. ABATACEPT [Suspect]
     Active Substance: ABATACEPT
     Indication: RHEUMATOID ARTHRITIS
     Dosage: 125 MG, Q4WK
     Route: 058
  2. PLAVIX [Concomitant]
     Active Substance: CLOPIDOGREL BISULFATE
     Indication: PRODUCT USED FOR UNKNOWN INDICATION
     Route: 065
  3. COUMADIN [Concomitant]
     Active Substance: WARFARIN SODIUM
     Indication: PRODUCT USED FOR UNKNOWN INDICATION
     Route: 065
  4. ABATACEPT [Suspect]
     Active Substance: ABATACEPT
     Indication: RHEUMATOID ARTHRITIS
     Dosage: 750 MG, Q4WK
     Route: 042

REACTIONS (12)
  - Off label use [Unknown]
  - Arthropod bite [Unknown]
  - Fracture [Unknown]
  - Sinusitis [Unknown]
  - Cellulitis orbital [Recovered/Resolved]
  - Swelling face [Unknown]
  - Nephrolithiasis [Unknown]
  - Radiculopathy [Unknown]
  - Bursitis [Unknown]
  - Hypertension [Unknown]
  - Bronchitis [Unknown]
  - Oedema [Unknown]

NARRATIVE: CASE EVENT DATE: 201301
